FAERS Safety Report 9402336 (Version 1)
Quarter: 2013Q3

REPORT INFORMATION
  Report Type: Spontaneous
  Country: AT (occurrence: AT)
  Receive Date: 20130716
  Receipt Date: 20130716
  Transmission Date: 20140515
  Serious: Yes (Other)
  Sender: FDA-Public Use
  Company Number: AT-BAYER-2013-083462

PATIENT
  Sex: Male

DRUGS (1)
  1. NEXAVAR [Suspect]
     Indication: PAPILLARY THYROID CANCER
     Dosage: UNK
     Dates: start: 201210, end: 201307

REACTIONS (2)
  - Papillary thyroid cancer [Not Recovered/Not Resolved]
  - Off label use [None]
